FAERS Safety Report 7961785-0 (Version None)
Quarter: 2011Q4

REPORT INFORMATION
  Report Type: 
  Country: None (occurrence: None)
  Receive Date: 20111202
  Receipt Date: 20111202
  Transmission Date: 20120403
  Serious: Yes (Hospitalization)
  Sender: FDA-Public Use
  Company Number: None

PATIENT
  Age: 65 Year
  Sex: Male
  Weight: 95 kg

DRUGS (3)
  1. WARFARIN SODIUM [Suspect]
     Indication: ATRIAL FIBRILLATION
     Dosage: 3 MG EVERY DAY PO
     Route: 048
     Dates: start: 20111109, end: 20111122
  2. WARFARIN SODIUM [Suspect]
     Indication: SURGERY
     Dosage: 3 MG EVERY DAY PO
     Route: 048
     Dates: start: 20111109, end: 20111122
  3. WARFARIN SODIUM [Suspect]
     Indication: CARDIOVASCULAR DISORDER
     Dosage: 3 MG EVERY DAY PO
     Route: 048
     Dates: start: 20111109, end: 20111122

REACTIONS (1)
  - INTERNATIONAL NORMALISED RATIO ABNORMAL [None]
